FAERS Safety Report 9833543 (Version 2)
Quarter: 2014Q1

REPORT INFORMATION
  Report Type: Spontaneous
  Country: JP (occurrence: JP)
  Receive Date: 20140122
  Receipt Date: 20140221
  Transmission Date: 20141002
  Serious: No
  Sender: FDA-Public Use
  Company Number: JP-009507513-1401JPN009574

PATIENT
  Age: 31 Year
  Sex: Male

DRUGS (6)
  1. SINGULAIR TABLETS 10MG [Suspect]
     Indication: ASTHMA
     Dosage: 10 MG, 1 DAY
     Route: 048
     Dates: start: 20131029, end: 20131203
  2. PREDONINE [Suspect]
     Indication: ASTHMA
     Dosage: 20 MG, 1 DAY
     Route: 048
     Dates: start: 20131029, end: 20131102
  3. TAKEPRON [Suspect]
     Indication: PROPHYLAXIS AGAINST GASTROINTESTINAL ULCER
     Dosage: 15 MG, 1 DAY
     Route: 048
     Dates: start: 20131029, end: 20131102
  4. ADOAIR [Suspect]
     Indication: ASTHMA
     Dosage: 500 MICROGRAM, BID (1 DAY)
     Route: 055
     Dates: start: 20131029, end: 20131105
  5. FLUTIDE [Suspect]
     Indication: ASTHMA
     Dosage: 200 MICROGRAM, BID (1 DAY)
     Route: 055
     Dates: start: 20131105
  6. LOXONIN [Concomitant]
     Dosage: DAILY DOSAGE UNKNOWN, AS NEEDED
     Route: 048

REACTIONS (2)
  - Renal impairment [Recovered/Resolved]
  - Palpitations [Unknown]
